FAERS Safety Report 10250215 (Version 1)
Quarter: 2014Q2

REPORT INFORMATION
  Report Type: Spontaneous
  Country: US (occurrence: US)
  Receive Date: 20140620
  Receipt Date: 20140620
  Transmission Date: 20141212
  Serious: Yes (Other)
  Sender: FDA-Public Use
  Company Number: US-PFIZER INC-2014167984

PATIENT
  Sex: Female

DRUGS (6)
  1. LYRICA [Suspect]
     Indication: FIBROMYALGIA
     Dosage: 30 MG, 3X/DAY
     Route: 048
     Dates: start: 2010
  2. MORPHINE SULFATE [Suspect]
     Dosage: 30 MG, 3X/DAY
  3. AMITRIPTYLINE [Suspect]
     Indication: PAIN
     Dosage: 50 MG, 1X/DAY
  4. LEVOTHYROXINE [Concomitant]
     Indication: HYPOTHYROIDISM
     Dosage: UNK
  5. METFORMIN [Concomitant]
     Indication: DIABETES MELLITUS
     Dosage: UNK
  6. FLUOXETINE [Concomitant]
     Indication: DEPRESSION
     Dosage: 10 MG, 2X/DAY

REACTIONS (3)
  - Hepatic failure [Unknown]
  - Renal disorder [Unknown]
  - Hypersomnia [Unknown]
